FAERS Safety Report 7004807-6 (Version None)
Quarter: 2010Q3

REPORT INFORMATION
  Report Type: 
  Country: None (occurrence: None)
  Receive Date: 20100921
  Receipt Date: 20100304
  Transmission Date: 20110219
  Serious: No
  Sender: FDA-Public Use
  Company Number: A0848337A

PATIENT
  Age: 69 Year
  Sex: Male

DRUGS (8)
  1. EPZICOM [Suspect]
     Indication: HIV INFECTION
     Dosage: 1TAB PER DAY
     Route: 048
     Dates: start: 20080101
  2. LEXIVA [Concomitant]
  3. NORVIR [Concomitant]
  4. CRESTOR [Concomitant]
  5. LEXAPRO [Concomitant]
  6. HYOSCYAMINE [Concomitant]
  7. DOXYCYCLINE [Concomitant]
  8. ANDROGEL [Concomitant]

REACTIONS (6)
  - DYSPNOEA [None]
  - FATIGUE [None]
  - OEDEMA PERIPHERAL [None]
  - PALPITATIONS [None]
  - PARAESTHESIA [None]
  - RASH [None]
